FAERS Safety Report 7724935-7 (Version None)
Quarter: 2011Q3

REPORT INFORMATION
  Report Type: 
  Country: None (occurrence: None)
  Receive Date: 20110901
  Receipt Date: 20110823
  Transmission Date: 20111222
  Serious: Yes (Other)
  Sender: FDA-Public Use
  Company Number: IN-BAXTER-2011BH027489

PATIENT
  Age: 6 Year
  Sex: Male

DRUGS (2)
  1. IMMUNE GLOBULIN INTRAVENOUS (HUMAN) [Suspect]
     Indication: OFF LABEL USE
     Route: 042
  2. IMMUNE GLOBULIN INTRAVENOUS (HUMAN) [Suspect]
     Indication: JUVENILE ARTHRITIS
     Route: 042

REACTIONS (9)
  - CONVULSION [None]
  - TACHYCARDIA [None]
  - BLINDNESS CORTICAL [None]
  - NO THERAPEUTIC RESPONSE [None]
  - CARDIOMEGALY [None]
  - CARDIOGENIC SHOCK [None]
  - NEPHROPATHY [None]
  - MYOCARDITIS [None]
  - DISSEMINATED INTRAVASCULAR COAGULATION [None]
